FAERS Safety Report 12245219 (Version 1)
Quarter: 2016Q2

REPORT INFORMATION
  Report Type: Spontaneous
  Country: US (occurrence: US)
  Receive Date: 20160407
  Receipt Date: 20160407
  Transmission Date: 20160815
  Serious: No
  Sender: FDA-Public Use
  Company Number: US-PFIZER INC-2016157361

PATIENT
  Age: 76 Year
  Sex: Female
  Weight: 104 kg

DRUGS (3)
  1. ADVIL PM [Suspect]
     Active Substance: DIPHENHYDRAMINE CITRATE\IBUPROFEN
     Indication: PAIN IN EXTREMITY
  2. ADVIL [Suspect]
     Active Substance: IBUPROFEN
     Indication: PAIN IN EXTREMITY
     Dosage: 2 DF, 200MG, 2, LIQUIGELS, BY MOUTH
     Route: 048
  3. ADVIL PM [Suspect]
     Active Substance: DIPHENHYDRAMINE CITRATE\IBUPROFEN
     Indication: SLEEP DISORDER
     Dosage: 200 MG, AS NEEDED; 200MG, ONE, TABLET, BY MOUTH, TAKES AS NEEDED
     Route: 048
     Dates: start: 2016

REACTIONS (2)
  - Drug ineffective [Unknown]
  - Intentional product use issue [Unknown]
